FAERS Safety Report 19243840 (Version 5)
Quarter: 2021Q3

REPORT INFORMATION
  Report Type: Report from Study
  Country: None (occurrence: IL)
  Receive Date: 20210511
  Receipt Date: 20210811
  Transmission Date: 20211014
  Serious: Yes (Other)
  Sender: FDA-Public Use
  Company Number: IL-ABBVIE-19K-082-2985883-00

PATIENT
  Age: 77 Year
  Sex: Female
  Weight: 72 kg

DRUGS (22)
  1. HYDRATION VITAMIN [Concomitant]
     Route: 042
     Dates: start: 20190915
  2. RECITAL [Concomitant]
     Indication: PROPHYLAXIS
     Dates: start: 20190118
  3. VENETOCLAX. [Suspect]
     Active Substance: VENETOCLAX
     Dosage: PER TITRATION SCHEME THEN DOSE INCREASE
     Route: 048
     Dates: start: 20190922, end: 20191001
  4. FUSID [Concomitant]
     Indication: CARDIOVASCULAR EVENT PROPHYLAXIS
     Dates: start: 20190206
  5. HYDRATION VITAMIN [Concomitant]
     Route: 042
     Dates: start: 20190922
  6. DIGOXIN. [Concomitant]
     Active Substance: DIGOXIN
     Indication: CARDIAC DISORDER
     Dates: start: 2017
  7. PRADAXA [Concomitant]
     Active Substance: DABIGATRAN ETEXILATE MESYLATE
     Indication: THROMBOSIS PROPHYLAXIS
  8. COVID?19 VACCINE [Concomitant]
     Indication: COVID-19 PROPHYLAXIS
     Route: 030
     Dates: start: 20210107, end: 20210107
  9. COVID?19 VACCINE [Concomitant]
     Route: 030
     Dates: start: 20210128, end: 20210128
  10. VENETOCLAX. [Suspect]
     Active Substance: VENETOCLAX
     Route: 048
     Dates: start: 20191010, end: 20191117
  11. PRADAXA [Concomitant]
     Active Substance: DABIGATRAN ETEXILATE MESYLATE
     Indication: CEREBROVASCULAR ACCIDENT PROPHYLAXIS
     Dates: start: 20190118
  12. VENETOCLAX. [Suspect]
     Active Substance: VENETOCLAX
     Dosage: PER TITRATION SCHEME THEN DOSE INCREASE
     Route: 048
     Dates: start: 20190915, end: 20190921
  13. ALLOPURINOL. [Concomitant]
     Active Substance: ALLOPURINOL
     Indication: PROPHYLAXIS
     Dates: start: 20190902
  14. HYDRATION VITAMIN [Concomitant]
     Route: 042
     Dates: start: 20191002
  15. VENETOCLAX. [Suspect]
     Active Substance: VENETOCLAX
     Indication: CHRONIC LYMPHOCYTIC LEUKAEMIA
     Dosage: PER TITRATION SCHEME THEN DOSE INCREASE
     Route: 048
     Dates: start: 20190909, end: 20190914
  16. VENETOCLAX. [Suspect]
     Active Substance: VENETOCLAX
     Route: 048
     Dates: start: 20191118
  17. HYDRATION VITAMIN [Concomitant]
     Indication: PRODUCT USED FOR UNKNOWN INDICATION
     Route: 042
     Dates: start: 20190909
  18. CODEINE PHOSPHATE [Concomitant]
     Active Substance: CODEINE PHOSPHATE
     Indication: PAIN
     Dates: start: 20191201
  19. LOSARDEX [Concomitant]
     Active Substance: LOSARTAN POTASSIUM
     Indication: CARDIAC DISORDER
     Dates: start: 20191219
  20. BISOPROLOL FUMARATE. [Concomitant]
     Active Substance: BISOPROLOL FUMARATE
     Indication: HYPERTENSION
  21. NEXIUM [Concomitant]
     Active Substance: ESOMEPRAZOLE MAGNESIUM
     Indication: PROPHYLAXIS AGAINST GASTROINTESTINAL ULCER
     Dates: start: 20190118
  22. VENETOCLAX. [Suspect]
     Active Substance: VENETOCLAX
     Dosage: PER TITRATION SCHEME THEN DOSE INCREASE
     Route: 048
     Dates: start: 20191002, end: 20191009

REACTIONS (13)
  - Humerus fracture [Recovered/Resolved]
  - Stridor [Recovered/Resolved]
  - Neutrophil count decreased [Recovered/Resolved]
  - Dyspnoea [Recovered/Resolved]
  - Neutrophil count decreased [Recovered/Resolved]
  - Nausea [Recovered/Resolved]
  - Anaemia [Unknown]
  - Neutrophil count decreased [Recovered/Resolved]
  - Iron deficiency anaemia [Recovered/Resolved]
  - Dyspnoea [Recovered/Resolved]
  - Neutrophil count decreased [Recovered/Resolved]
  - Headache [Recovered/Resolved]
  - Nausea [Recovered/Resolved]

NARRATIVE: CASE EVENT DATE: 20190912
